FAERS Safety Report 10005267 (Version 1)
Quarter: 2014Q1

REPORT INFORMATION
  Report Type: Spontaneous
  Country: US (occurrence: US)
  Receive Date: 20140312
  Receipt Date: 20140312
  Transmission Date: 20141002
  Serious: Yes (Death, Other)
  Sender: FDA-Public Use
  Company Number: US-CELGENEUS-163-POMAL-14030233

PATIENT
  Age: 66 Year
  Sex: Female

DRUGS (1)
  1. POMALYST [Suspect]
     Indication: PLASMA CELL MYELOMA
     Dosage: 4 MILLIGRAM
     Route: 048
     Dates: start: 201312

REACTIONS (5)
  - Plasma cell myeloma [Fatal]
  - Musculoskeletal disorder [Unknown]
  - Respiratory disorder [Unknown]
  - Dysphagia [Unknown]
  - Asthenia [Unknown]
